FAERS Safety Report 17609755 (Version 1)
Quarter: 2020Q2

REPORT INFORMATION
  Report Type: Other
  Country: CA (occurrence: CA)
  Receive Date: 20200401
  Receipt Date: 20200401
  Transmission Date: 20200713
  Serious: Yes (Life-Threatening, Other)
  Sender: FDA-Public Use
  Company Number: CA-GLENMARK PHARMACEUTICALS-2020GMK046929

PATIENT

DRUGS (2)
  1. GABAPENTIN. [Suspect]
     Active Substance: GABAPENTIN
     Indication: NEURALGIA
     Dosage: 100 MILLIGRAM, TID (3 EVERY 1 DAYS)
     Route: 065
  2. PMS-GABAPENTIN [Suspect]
     Active Substance: GABAPENTIN
     Indication: NEURALGIA
     Dosage: 300 MILLIGRAM, TID (3 EVERY 1 DAYS)
     Route: 065

REACTIONS (7)
  - Suicidal ideation [Recovered/Resolved]
  - Depressed mood [Recovered/Resolved]
  - Balance disorder [Recovered/Resolved]
  - Suicide attempt [Recovered/Resolved]
  - Product use in unapproved indication [Unknown]
  - Vision blurred [Recovered/Resolved]
  - Dizziness [Recovered/Resolved]
